FAERS Safety Report 19986392 (Version 1)
Quarter: 2021Q4

REPORT INFORMATION
  Report Type: Report from Study
  Country: CA (occurrence: CA)
  Receive Date: 20211022
  Receipt Date: 20211022
  Transmission Date: 20220303
  Serious: Yes (Other)
  Sender: FDA-Public Use
  Company Number: CA-JNJFOC-20210750064

PATIENT
  Age: 78 Year
  Sex: Male

DRUGS (16)
  1. MACITENTAN [Suspect]
     Active Substance: MACITENTAN
     Indication: Pulmonary hypertension
     Route: 048
  2. MACITENTAN [Suspect]
     Active Substance: MACITENTAN
     Indication: Pulmonary hypertension
  3. SELEXIPAG [Suspect]
     Active Substance: SELEXIPAG
     Indication: Pulmonary hypertension
     Route: 048
     Dates: start: 20210712
  4. SELEXIPAG [Suspect]
     Active Substance: SELEXIPAG
     Indication: Pulmonary hypertension
     Route: 048
  5. SELEXIPAG [Suspect]
     Active Substance: SELEXIPAG
     Route: 048
  6. SELEXIPAG [Suspect]
     Active Substance: SELEXIPAG
     Route: 048
     Dates: end: 20211012
  7. AMOXICILLIN [Suspect]
     Active Substance: AMOXICILLIN
     Indication: Ear pain
     Route: 065
     Dates: start: 20210717
  8. ADCIRCA [Concomitant]
     Active Substance: TADALAFIL
  9. AMBRISENTAN [Concomitant]
     Active Substance: AMBRISENTAN
  10. METOPROLOL [Concomitant]
     Active Substance: METOPROLOL
  11. AMLODIPINE [Concomitant]
     Active Substance: AMLODIPINE BESYLATE
  12. VALSARTAN [Concomitant]
     Active Substance: VALSARTAN
  13. ASPIRIN [Concomitant]
     Active Substance: ASPIRIN
  14. BOTOX [Concomitant]
     Active Substance: ONABOTULINUMTOXINA
  15. OXYGEN [Concomitant]
     Active Substance: OXYGEN
     Dosage: 2-4L,
  16. FISH OIL [Concomitant]
     Active Substance: FISH OIL

REACTIONS (6)
  - Gastrointestinal disorder [Not Recovered/Not Resolved]
  - Ear pain [Not Recovered/Not Resolved]
  - Headache [Not Recovered/Not Resolved]
  - Neck pain [Not Recovered/Not Resolved]
  - Toothache [Unknown]
  - Pruritus [Unknown]

NARRATIVE: CASE EVENT DATE: 20210717
